FAERS Safety Report 7806584-5 (Version None)
Quarter: 2011Q4

REPORT INFORMATION
  Report Type: 
  Country: None (occurrence: None)
  Receive Date: 20111007
  Receipt Date: 20111007
  Transmission Date: 20120403
  Serious: Yes (Hospitalization)
  Sender: FDA-Public Use
  Company Number: None

PATIENT
  Sex: Male
  Weight: 97.3 kg

DRUGS (2)
  1. CYTARABINE [Suspect]
     Dosage: 3080 MG
     Dates: end: 20110921
  2. DAUNORUBICIN HCL [Suspect]
     Dosage: 78 MG
     Dates: end: 20110917

REACTIONS (4)
  - GASTROINTESTINAL HAEMORRHAGE [None]
  - COLITIS [None]
  - HAEMATOCHEZIA [None]
  - BLOOD BILIRUBIN INCREASED [None]
